FAERS Safety Report 5967539-9 (Version None)
Quarter: 2008Q4

REPORT INFORMATION
  Report Type: 
  Country: None (occurrence: None)
  Receive Date: 20081125
  Receipt Date: 20081117
  Transmission Date: 20090506
  Serious: Yes (Other)
  Sender: FDA-Public Use
  Company Number: GR-PFIZER INC-2008097352

PATIENT
  Sex: Male

DRUGS (1)
  1. LYRICA [Suspect]
     Indication: ANXIETY DISORDER
     Route: 048
     Dates: start: 20081101, end: 20081101

REACTIONS (1)
  - SINUS BRADYCARDIA [None]
